FAERS Safety Report 14661881 (Version 2)
Quarter: 2018Q2

REPORT INFORMATION
  Report Type: Report from Study
  Country: None (occurrence: CH)
  Receive Date: 20180320
  Receipt Date: 20180410
  Transmission Date: 20180711
  Serious: Yes (Death, Hospitalization)
  Sender: FDA-Public Use
  Company Number: CH-ABBVIE-18K-151-2290410-00

PATIENT
  Age: 77 Year
  Sex: Male

DRUGS (1)
  1. DUODOPA [Suspect]
     Active Substance: CARBIDOPA\LEVODOPA
     Indication: PARKINSON^S DISEASE
     Dosage: 24H THERAPY ?MD: 3.4ML; CD DAY: 3.6ML/H; CD NIGHT: 2.3ML/H; ED: 2.5ML
     Route: 050
     Dates: start: 20101011

REACTIONS (8)
  - Pleural effusion [Unknown]
  - Device alarm issue [Recovered/Resolved]
  - Infection [Fatal]
  - Disorientation [Unknown]
  - Sepsis [Fatal]
  - Social stay hospitalisation [Unknown]
  - Feeling abnormal [Unknown]
  - Aggression [Unknown]

NARRATIVE: CASE EVENT DATE: 20180314
